FAERS Safety Report 16407283 (Version 2)
Quarter: 2020Q2

REPORT INFORMATION
  Report Type: Spontaneous
  Country: PL (occurrence: PL)
  Receive Date: 20190608
  Receipt Date: 20200612
  Transmission Date: 20200713
  Serious: Yes (Death, Life-Threatening, Hospitalization, Other)
  Sender: FDA-Public Use
  Company Number: PL-B.I. PHARMACEUTICALS,INC./RIDGEFIELD-2019-BI-025547

PATIENT
  Age: 68 Year
  Sex: Male

DRUGS (11)
  1. PRAXBIND [Suspect]
     Active Substance: IDARUCIZUMAB
     Indication: PROCOAGULANT THERAPY
     Dosage: 2X2.5 G WITHIN 10 MIN
     Route: 065
  2. EPINEPHRINE. [Suspect]
     Active Substance: EPINEPHRINE
     Indication: POST PROCEDURAL HAEMORRHAGE
     Dosage: INCREASING DOSES
     Route: 042
  3. NOREPINEPHRINE. [Suspect]
     Active Substance: NOREPINEPHRINE
     Indication: POST PROCEDURAL HAEMORRHAGE
     Dosage: INCREASING DOSES
     Route: 042
  4. PROTAMINE [Suspect]
     Active Substance: PROTAMINE
     Indication: POST PROCEDURAL HAEMORRHAGE
     Route: 065
  5. IPRATROPIUM BROMIDE. [Concomitant]
     Active Substance: IPRATROPIUM BROMIDE
     Indication: CHRONIC OBSTRUCTIVE PULMONARY DISEASE
     Route: 065
  6. ACETYLSALICYLIC ACID [Suspect]
     Active Substance: ASPIRIN
     Indication: ACUTE CORONARY SYNDROME
     Dosage: LOADING DOSE OF 300 MG; IN TOTAL
     Route: 065
     Dates: start: 20160812
  7. CLOPIDOGREL [Suspect]
     Active Substance: CLOPIDOGREL BISULFATE
     Indication: ACUTE CORONARY SYNDROME
     Dosage: LOADING DOSE OF 600 MG; IN TOTAL
     Route: 065
     Dates: start: 20160812
  8. FORMOTEROL [Concomitant]
     Active Substance: FORMOTEROL
     Indication: CHRONIC OBSTRUCTIVE PULMONARY DISEASE
     Route: 055
  9. LEVOTHYROXINE. [Concomitant]
     Active Substance: LEVOTHYROXINE
     Indication: AUTOIMMUNE THYROIDITIS
     Route: 065
  10. LACIDIPINE [Concomitant]
     Active Substance: LACIDIPINE
     Indication: HYPERTENSION
     Route: 065
  11. BISOPROLOL [Concomitant]
     Active Substance: BISOPROLOL
     Indication: HYPERTENSION
     Route: 065

REACTIONS (4)
  - Shock [Fatal]
  - Drug ineffective [Fatal]
  - Procedural haemorrhage [Unknown]
  - Post procedural haemorrhage [Fatal]
